FAERS Safety Report 14614365 (Version 1)
Quarter: 2018Q1

REPORT INFORMATION
  Report Type: Spontaneous
  Country: GB (occurrence: FR)
  Receive Date: 20180308
  Receipt Date: 20180308
  Transmission Date: 20180509
  Serious: Yes (Life-Threatening)
  Sender: FDA-Public Use
  Company Number: FR-FRESENIUS KABI-FK201802405

PATIENT
  Age: 11 Year
  Sex: Male

DRUGS (3)
  1. VANCOMYCIN MYLAN [Concomitant]
     Active Substance: VANCOMYCIN
     Indication: PRODUCT USE IN UNAPPROVED INDICATION
     Route: 042
  2. LEVOFLOXACIN KABI (NOT SPECIFIED) (LEVOFLOXACIN) (LEVOFLOXACIN) [Suspect]
     Active Substance: LEVOFLOXACIN
     Indication: ARTHRALGIA
     Route: 042
     Dates: start: 201801
  3. IMIPENEM CILASTATINE KABI [Concomitant]
     Indication: PRODUCT USE IN UNAPPROVED INDICATION
     Route: 042

REACTIONS (4)
  - Partial seizures [Not Recovered/Not Resolved]
  - Overdose [Recovered/Resolved]
  - Off label use [Not Recovered/Not Resolved]
  - Product use in unapproved indication [Not Recovered/Not Resolved]

NARRATIVE: CASE EVENT DATE: 201802
